FAERS Safety Report 25498921 (Version 1)
Quarter: 2025Q3

REPORT INFORMATION
  Report Type: Spontaneous
  Country: US (occurrence: US)
  Receive Date: 20250701
  Receipt Date: 20250701
  Transmission Date: 20251021
  Serious: No
  Sender: BAYER HEALTHCARE LLC
  Company Number: US-BAYER-2025A086434

PATIENT
  Age: 88 Year
  Sex: Female

DRUGS (1)
  1. MIRALAX [Suspect]
     Active Substance: POLYETHYLENE GLYCOL 3350
     Indication: Prophylaxis
     Dosage: 2 DF, QD, STARTED 5-6 YEARS AGO
     Route: 048

REACTIONS (3)
  - Product use issue [Recovering/Resolving]
  - Therapeutic product effect decreased [Recovering/Resolving]
  - Extra dose administered [Recovering/Resolving]
